FAERS Safety Report 17589067 (Version 2)
Quarter: 2020Q3

REPORT INFORMATION
  Report Type: Spontaneous
  Country: US (occurrence: US)
  Receive Date: 20200327
  Receipt Date: 20200723
  Transmission Date: 20201102
  Serious: Yes (Hospitalization)
  Sender: FDA-Public Use
  Company Number: US-TEVA-2020-US-1210244

PATIENT
  Sex: Female

DRUGS (8)
  1. TRAZODONE [Concomitant]
     Active Substance: TRAZODONE HYDROCHLORIDE
     Route: 065
  2. ADDERALL [Concomitant]
     Active Substance: AMPHETAMINE ASPARTATE\AMPHETAMINE SULFATE\DEXTROAMPHETAMINE SACCHARATE\DEXTROAMPHETAMINE SULFATE
     Route: 065
  3. CLONAZEPAM. [Concomitant]
     Active Substance: CLONAZEPAM
     Route: 065
  4. FENTANYL. [Suspect]
     Active Substance: FENTANYL
     Route: 065
  5. HYDROCHLOROTHIAZIDE. [Concomitant]
     Active Substance: HYDROCHLOROTHIAZIDE
     Route: 065
  6. ATORVASTATIN [Concomitant]
     Active Substance: ATORVASTATIN
  7. OXYCODONE [Suspect]
     Active Substance: OXYCODONE
     Route: 065
     Dates: start: 20090319, end: 20190704
  8. BUPRENORPHINE. [Concomitant]
     Active Substance: BUPRENORPHINE
     Route: 065

REACTIONS (2)
  - Drug dependence [Recovered/Resolved]
  - Loss of personal independence in daily activities [Not Recovered/Not Resolved]
